FAERS Safety Report 4438704-7 (Version None)
Quarter: 2004Q3

REPORT INFORMATION
  Report Type: 
  Country: None (occurrence: None)
  Receive Date: 20040830
  Receipt Date: 20040817
  Transmission Date: 20050211
  Serious: Yes (Hospitalization, Disabling, Other)
  Sender: FDA-Public Use
  Company Number: 2002071442

PATIENT
  Sex: Male
  Weight: 74.8435 kg

DRUGS (1)
  1. DILANTIN [Suspect]
     Indication: GRAND MAL CONVULSION
     Dosage: 200 MG (100 MG, BID)
     Dates: start: 19700601

REACTIONS (11)
  - ACNE [None]
  - ANAL FISSURE [None]
  - BLOOD PRESSURE IMMEASURABLE [None]
  - COLLAPSE OF LUNG [None]
  - CROHN'S DISEASE [None]
  - FEELING ABNORMAL [None]
  - FISTULA [None]
  - HAEMATOCHEZIA [None]
  - LOOSE STOOLS [None]
  - SEPTIC SHOCK [None]
  - WEIGHT DECREASED [None]
